FAERS Safety Report 23694747 (Version 1)
Quarter: 2024Q2

REPORT INFORMATION
  Report Type: Spontaneous
  Country: CN (occurrence: CN)
  Receive Date: 20240402
  Receipt Date: 20240402
  Transmission Date: 20240716
  Serious: Yes (Death)
  Sender: FDA-Public Use
  Company Number: CN-ALKEM LABORATORIES LIMITED-CN-ALKEM-2023-06781

PATIENT
  Age: 50 Year
  Sex: Male

DRUGS (2)
  1. COLCHICINE [Suspect]
     Active Substance: COLCHICINE
     Indication: Product used for unknown indication
     Dosage: 180 MILLIGRAM
     Route: 065
  2. COLCHICINE [Suspect]
     Active Substance: COLCHICINE
     Dosage: 3 MILLIGRAM/KILOGRAM (INGESTION DOSE)
     Route: 065

REACTIONS (3)
  - Drug level increased [Fatal]
  - Toxicity to various agents [Fatal]
  - Overdose [Fatal]
